FAERS Safety Report 6027638-2 (Version None)
Quarter: 2009Q1

REPORT INFORMATION
  Report Type: 
  Country: None (occurrence: None)
  Receive Date: 20090105
  Receipt Date: 20080711
  Transmission Date: 20090719
  Serious: No
  Sender: FDA-Public Use
  Company Number: US-BAYER-200813057BCC

PATIENT
  Age: 70 Year
  Sex: Male
  Weight: 79 kg

DRUGS (9)
  1. ALEVE (CAPLET) [Suspect]
     Indication: EXOSTOSIS
     Route: 048
     Dates: start: 20080601
  2. ALEVE (CAPLET) [Suspect]
     Dosage: TOTAL DAILY DOSE: 440 MG  UNIT DOSE: 220 MG
     Route: 048
     Dates: start: 20080711
  3. ALEVE [Suspect]
     Indication: EXOSTOSIS
     Route: 048
     Dates: start: 20080601, end: 20080711
  4. ALEVE [Suspect]
     Dosage: TOTAL DAILY DOSE: 440 MG  UNIT DOSE: 220 MG
     Route: 048
     Dates: start: 20080711
  5. DARVOCET [Concomitant]
  6. ATENOLOL [Concomitant]
  7. CARDURA [Concomitant]
  8. PRILOSEC [Concomitant]
  9. LEXAPRO [Concomitant]

REACTIONS (1)
  - DYSPEPSIA [None]
